FAERS Safety Report 7074684-6 (Version None)
Quarter: 2010Q4

REPORT INFORMATION
  Report Type: 
  Country: None (occurrence: None)
  Receive Date: 20101021
  Receipt Date: 20101012
  Transmission Date: 20110411
  Serious: Yes (Death)
  Sender: FDA-Public Use
  Company Number: 019768

PATIENT
  Sex: Male
  Weight: 74.4 kg

DRUGS (1)
  1. KEPPRA [Suspect]
     Indication: PROPHYLAXIS
     Dosage: (500 MG BID ORAL)
     Route: 048
     Dates: start: 20100208

REACTIONS (1)
  - RENAL CELL CARCINOMA [None]
